FAERS Safety Report 6428788-9 (Version None)
Quarter: 2009Q4

REPORT INFORMATION
  Report Type: 
  Country: None (occurrence: None)
  Receive Date: 20091105
  Receipt Date: 20091028
  Transmission Date: 20100525
  Serious: Yes (Hospitalization)
  Sender: FDA-Public Use
  Company Number: JP-JNJFOC-20081202158

PATIENT
  Sex: Female
  Weight: 39 kg

DRUGS (20)
  1. GOLIMUMAB [Suspect]
     Route: 058
  2. GOLIMUMAB [Suspect]
     Indication: RHEUMATOID ARTHRITIS
     Route: 058
  3. REMICADE [Suspect]
     Route: 042
  4. REMICADE [Suspect]
     Route: 042
  5. REMICADE [Suspect]
     Indication: RHEUMATOID ARTHRITIS
     Route: 042
  6. OMEPRAL [Concomitant]
     Indication: PROPHYLAXIS
  7. FERROMIA [Concomitant]
     Indication: IRON DEFICIENCY
     Route: 048
  8. PREDONINE [Concomitant]
     Indication: RHEUMATOID ARTHRITIS
     Route: 048
  9. MYONAL [Concomitant]
     Indication: RHEUMATOID ARTHRITIS
     Route: 048
  10. MISOPROSTOL [Concomitant]
     Indication: PROPHYLAXIS
     Route: 048
  11. LOXONIN [Concomitant]
     Indication: RHEUMATOID ARTHRITIS
     Route: 048
  12. LIPITOR [Concomitant]
     Indication: HYPERLIPIDAEMIA
     Route: 048
  13. RHEUMATREX [Concomitant]
     Route: 048
  14. RHEUMATREX [Concomitant]
     Route: 048
  15. RHEUMATREX [Concomitant]
     Indication: RHEUMATOID ARTHRITIS
     Route: 048
  16. PAXIL [Concomitant]
     Indication: INSOMNIA
     Route: 048
  17. DORAL [Concomitant]
     Indication: INSOMNIA
     Route: 048
  18. ALFAROL [Concomitant]
     Indication: RHEUMATOID ARTHRITIS
     Route: 048
  19. CALCIUM LACTATE [Concomitant]
     Indication: RHEUMATOID ARTHRITIS
     Route: 048
  20. FOSAMAC [Concomitant]
     Indication: RHEUMATOID ARTHRITIS
     Route: 048

REACTIONS (3)
  - IMMOBILE [None]
  - PAIN [None]
  - TOOTH INFECTION [None]
